FAERS Safety Report 9169068 (Version 5)
Quarter: 2013Q2

REPORT INFORMATION
  Report Type: Report from Study
  Country: CA (occurrence: CA)
  Receive Date: 20130318
  Receipt Date: 20130418
  Transmission Date: 20140414
  Serious: Yes (Other)
  Sender: FDA-Public Use
  Company Number: CA-ROCHE-1173452

PATIENT
  Age: 52 Year
  Sex: Female
  Weight: 70 kg

DRUGS (8)
  1. ACTEMRA [Suspect]
     Indication: RHEUMATOID ARTHRITIS
     Route: 042
     Dates: start: 20121204
  2. FOLIC ACID [Concomitant]
  3. PREDNISONE [Concomitant]
  4. NADOLOL [Concomitant]
     Indication: MIGRAINE
  5. OMEPRAZOLE [Concomitant]
  6. CYMBALTA [Concomitant]
  7. METHOTREXATE [Concomitant]
  8. PLAQUENIL [Concomitant]

REACTIONS (5)
  - Fall [Unknown]
  - Wrist fracture [Not Recovered/Not Resolved]
  - Lower respiratory tract infection [Not Recovered/Not Resolved]
  - Blood pressure increased [Unknown]
  - Heart rate increased [Unknown]
